FAERS Safety Report 21856636 (Version 3)
Quarter: 2023Q1

REPORT INFORMATION
  Report Type: Report from Study
  Country: US (occurrence: US)
  Receive Date: 20230113
  Receipt Date: 20230313
  Transmission Date: 20230417
  Serious: Yes (Other)
  Sender: FDA-Public Use
  Company Number: US-ABBVIE-4266139

PATIENT
  Age: 61 Year
  Sex: Male
  Weight: 120 kg

DRUGS (6)
  1. HUMIRA [Suspect]
     Active Substance: ADALIMUMAB
     Indication: Crohn^s disease
     Dosage: CITRATE FREE, FORM STRENGTH: 40 MILLIGRAM
     Route: 058
     Dates: start: 20131201
  2. VEMLIDY [Concomitant]
     Active Substance: TENOFOVIR ALAFENAMIDE FUMARATE
     Indication: Hepatitis
  3. VITAMIN D3 [Concomitant]
     Active Substance: CHOLECALCIFEROL
     Indication: Vitamin supplementation
  4. GATTEX [Concomitant]
     Active Substance: TEDUGLUTIDE\WATER
     Indication: Gastrointestinal disorder
  5. PANTOPRAZOLE [Concomitant]
     Active Substance: PANTOPRAZOLE
     Indication: Gastrooesophageal reflux disease
  6. Phospha [Concomitant]
     Indication: Dyspepsia

REACTIONS (7)
  - Gastric haemorrhage [Recovering/Resolving]
  - Abdominal hernia [Not Recovered/Not Resolved]
  - Abdominal pain upper [Unknown]
  - Stoma site haemorrhage [Recovering/Resolving]
  - Abdominal distension [Not Recovered/Not Resolved]
  - Colostomy [Unknown]
  - Complication associated with device [Unknown]

NARRATIVE: CASE EVENT DATE: 20221101
